FAERS Safety Report 6268346-2 (Version None)
Quarter: 2009Q3

REPORT INFORMATION
  Report Type: 
  Country: None (occurrence: None)
  Receive Date: 20090715
  Receipt Date: 20090706
  Transmission Date: 20100115
  Serious: Yes (Disabling)
  Sender: FDA-Public Use
  Company Number: PHEH2009US05962

PATIENT
  Sex: Female
  Weight: 64.5 kg

DRUGS (4)
  1. GLEEVEC [Suspect]
     Indication: CHRONIC MYELOID LEUKAEMIA
     Dosage: 400 MG, UNK
     Route: 048
     Dates: start: 20041101, end: 20090417
  2. SEROQUEL [Concomitant]
     Indication: DEPRESSION
     Dosage: 25 MG
     Route: 048
  3. BUSPIRONE HCL [Concomitant]
     Indication: ANXIETY
     Dosage: 5 MG
  4. PREVACID [Concomitant]
     Indication: GASTROOESOPHAGEAL REFLUX DISEASE
     Dosage: 30 MG
     Route: 048

REACTIONS (4)
  - ABASIA [None]
  - GAIT DISTURBANCE [None]
  - HEMIPARESIS [None]
  - MOTOR DYSFUNCTION [None]
